FAERS Safety Report 7362011-6 (Version None)
Quarter: 2011Q1

REPORT INFORMATION
  Report Type: 
  Country: None (occurrence: None)
  Receive Date: 20110318
  Receipt Date: 20110311
  Transmission Date: 20110831
  Serious: Yes (Hospitalization, Other)
  Sender: FDA-Public Use
  Company Number: BR-PFIZER INC-2011055314

PATIENT
  Age: 43 Year
  Sex: Female

DRUGS (1)
  1. NORDETTE-21 [Suspect]
     Dosage: UNK
     Route: 048
     Dates: start: 20100101

REACTIONS (4)
  - HYPOTHYROIDISM [None]
  - ARTHRALGIA [None]
  - ANAEMIA [None]
  - PAIN IN EXTREMITY [None]
